FAERS Safety Report 6439039-3 (Version None)
Quarter: 2009Q4

REPORT INFORMATION
  Report Type: 
  Country: None (occurrence: None)
  Receive Date: 20091113
  Receipt Date: 20091104
  Transmission Date: 20100525
  Serious: Yes (Hospitalization)
  Sender: FDA-Public Use
  Company Number: US-TYCO HEALTHCARE/MALLINCKRODT-T200901965

PATIENT
  Sex: Male

DRUGS (3)
  1. CONRAY [Suspect]
     Indication: JOINT INJECTION
     Dosage: 1 ML, SINGLE
     Route: 014
     Dates: start: 20090716, end: 20090716
  2. BUPIVACAINE [Suspect]
     Indication: JOINT INJECTION
     Dosage: 4 ML UNK
     Route: 014
     Dates: start: 20090716, end: 20090716
  3. DEPO-MEDROL [Suspect]
     Indication: JOINT INJECTION
     Dosage: 40 MG, SINGLE
     Route: 014
     Dates: start: 20090716, end: 20090716

REACTIONS (3)
  - INJECTION SITE INFECTION [None]
  - INJECTION SITE PAIN [None]
  - INTENTIONAL DRUG MISUSE [None]
